FAERS Safety Report 6864220-9 (Version None)
Quarter: 2010Q3

REPORT INFORMATION
  Report Type: 
  Country: None (occurrence: None)
  Receive Date: 20100720
  Receipt Date: 20100706
  Transmission Date: 20110219
  Serious: Yes (Hospitalization, Other)
  Sender: FDA-Public Use
  Company Number: A-US2010-36069

PATIENT
  Age: 95 Year
  Sex: Male

DRUGS (1)
  1. TRACLEER [Suspect]
     Indication: PULMONARY ARTERIAL HYPERTENSION
     Dosage: ORAL
     Route: 048
     Dates: start: 20061102, end: 20100322

REACTIONS (9)
  - CARDIAC FAILURE CONGESTIVE [None]
  - DYSPNOEA [None]
  - FLUID RETENTION [None]
  - FOOT AMPUTATION [None]
  - GANGRENE [None]
  - HYPOTENSION [None]
  - PNEUMONIA [None]
  - SKIN LESION [None]
  - THROMBOSIS [None]
